FAERS Safety Report 23971550 (Version 1)
Quarter: 2024Q2

REPORT INFORMATION
  Report Type: Spontaneous
  Country: US (occurrence: None)
  Receive Date: 20240612
  Receipt Date: 20240612
  Transmission Date: 20240715
  Serious: Yes (Hospitalization)
  Sender: FDA-Public Use
  Company Number: None

PATIENT
  Age: 39 Year
  Sex: Female

DRUGS (1)
  1. YESCARTA [Suspect]
     Active Substance: AXICABTAGENE CILOLEUCEL
     Indication: B-cell type acute leukaemia
     Dosage: OTHER FREQUENCY : ONCE;?
     Route: 042
     Dates: start: 20240402, end: 20240402

REACTIONS (8)
  - Cytokine release syndrome [None]
  - Neurotoxicity [None]
  - Hypoxia [None]
  - Encephalopathy [None]
  - Partial seizures [None]
  - Liver injury [None]
  - Acute kidney injury [None]
  - Pneumonia [None]

NARRATIVE: CASE EVENT DATE: 20240416
